FAERS Safety Report 18415440 (Version 3)
Quarter: 2022Q1

REPORT INFORMATION
  Report Type: Spontaneous
  Country: AT (occurrence: AT)
  Receive Date: 20201022
  Receipt Date: 20220304
  Transmission Date: 20220423
  Serious: Yes (Life-Threatening, Hospitalization)
  Sender: FDA-Public Use
  Company Number: AT-TEVA-2020-AT-1839764

PATIENT
  Age: 47 Year
  Sex: Female

DRUGS (7)
  1. MOXIFLOXACIN [Suspect]
     Active Substance: MOXIFLOXACIN
     Route: 065
  2. LINEZOLID [Suspect]
     Active Substance: LINEZOLID
     Route: 065
  3. CAPREOMYCIN [Suspect]
     Active Substance: CAPREOMYCIN
     Route: 065
  4. CYCLOSERINE [Suspect]
     Active Substance: CYCLOSERINE
     Route: 065
  5. BEDAQUILINE [Suspect]
     Active Substance: BEDAQUILINE
     Route: 065
  6. AMINOSALICYLIC ACID [Suspect]
     Active Substance: AMINOSALICYLIC ACID
     Route: 065
  7. DELAMANID [Suspect]
     Active Substance: DELAMANID
     Dosage: DELAMANIDE
     Route: 065

REACTIONS (7)
  - Neuropathy peripheral [Unknown]
  - Psychotic disorder [Unknown]
  - Acute kidney injury [Unknown]
  - Hyperalbuminaemia [Unknown]
  - Multiple-drug resistance [Unknown]
  - Nausea [Unknown]
  - Vomiting [Unknown]
